FAERS Safety Report 7601412 (Version 3)
Quarter: 2013Q4

REPORT INFORMATION
  Report Type: Spontaneous
  Country: GB (occurrence: None)
  Receive Date: 20100909
  Receipt Date: 20131119
  Transmission Date: 20140711
  Serious: Yes (Hospitalization, Other)
  Sender: FDA-Public Use
  Company Number: 20100417

PATIENT
  Age: 65 Year
  Sex: Female

DRUGS (13)
  1. METHYLENE BLUE [Suspect]
     Indication: PARATHYROIDECTOMY
     Dosage: 200 MG (1.75 MG/KG) INTRAVENOUS DRIP
     Route: 041
  2. ATENOLOL [Concomitant]
  3. METFORMIN [Concomitant]
  4. MIDAZOLAM [Concomitant]
  5. ROCURONIUM BROMIDE [Concomitant]
  6. PAROXETINE [Concomitant]
  7. CARBIMAZOLE [Suspect]
  8. RAMIPRIL [Concomitant]
  9. ASPIRIN [Concomitant]
  10. SIMVASTATIN [Concomitant]
  11. PROPOFOL [Concomitant]
  12. FENTANYL [Concomitant]
  13. INSULIN NOS [Concomitant]

REACTIONS (9)
  - Aphasia [None]
  - Confusional state [None]
  - Agitation [None]
  - Restlessness [None]
  - Blood pressure systolic increased [None]
  - Blood glucose increased [None]
  - PO2 decreased [None]
  - Unresponsive to stimuli [None]
  - Somnolence [None]
